FAERS Safety Report 7897412-0 (Version None)
Quarter: 2011Q4

REPORT INFORMATION
  Report Type: 
  Country: None (occurrence: None)
  Receive Date: 20111107
  Receipt Date: 20111027
  Transmission Date: 20120403
  Serious: Yes (Other)
  Sender: FDA-Public Use
  Company Number: GB-JNJFOC-20111012215

PATIENT
  Age: 77 Year
  Sex: Female

DRUGS (3)
  1. STEROIDS NOS [Concomitant]
  2. METHOTREXATE [Concomitant]
  3. INFLIXIMAB, RECOMBINANT [Suspect]
     Indication: RHEUMATOID ARTHRITIS
     Route: 042
     Dates: start: 20031107

REACTIONS (1)
  - BASAL CELL CARCINOMA [None]
